FAERS Safety Report 23474661 (Version 1)
Quarter: 2024Q1

REPORT INFORMATION
  Report Type: Spontaneous
  Country: AU (occurrence: AU)
  Receive Date: 20240204
  Receipt Date: 20240204
  Transmission Date: 20240410
  Serious: Yes (Death, Other)
  Sender: FDA-Public Use
  Company Number: AU-EXELIXIS-CABO-23063710

PATIENT
  Weight: 68.3 kg

DRUGS (8)
  1. CABOMETYX [Suspect]
     Active Substance: CABOZANTINIB S-MALATE
     Indication: Thyroid cancer metastatic
     Route: 048
     Dates: start: 20221004, end: 20221213
  2. TEMAZEPAM [Concomitant]
     Active Substance: TEMAZEPAM
     Indication: Insomnia
     Dosage: 10-30MG
     Route: 048
     Dates: start: 20220614
  3. ASPIRIN [Concomitant]
     Active Substance: ASPIRIN
     Indication: Gastrointestinal carcinoma
     Route: 048
     Dates: start: 202108
  4. THYROXINE [Concomitant]
     Active Substance: LEVOTHYROXINE
     Indication: Hypothyroidism
     Dosage: 100MCG
     Route: 048
     Dates: start: 20220427
  5. SILODOSIN [Concomitant]
     Active Substance: SILODOSIN
     Indication: Benign prostatic hyperplasia
     Route: 048
     Dates: start: 20220523
  6. FISH OIL [Concomitant]
     Active Substance: FISH OIL
     Indication: Vitamin supplementation
     Dosage: 1 TAB
     Route: 048
     Dates: start: 2012
  7. VITAMIN C [Concomitant]
     Active Substance: ASCORBIC ACID
     Indication: Vitamin supplementation
     Dosage: 500 MG, QD
     Route: 048
     Dates: start: 2012
  8. AUGMENTIN [Concomitant]
     Active Substance: AMOXICILLIN\CLAVULANATE POTASSIUM
     Indication: Conjunctivitis
     Dosage: 1 TABLET BD
     Route: 048
     Dates: start: 20220610, end: 20220615

REACTIONS (1)
  - Malignant neoplasm progression [Fatal]
